FAERS Safety Report 18931801 (Version 1)
Quarter: 2021Q1

REPORT INFORMATION
  Report Type: Spontaneous
  Country: US (occurrence: US)
  Receive Date: 20210223
  Receipt Date: 20210223
  Transmission Date: 20210420
  Serious: No
  Sender: FDA-Public Use
  Company Number: US-IGSA-BIG0011060

PATIENT
  Age: 70 Year
  Sex: Female
  Weight: 44 kg

DRUGS (7)
  1. PROLASTIN?C LIQUID [Suspect]
     Active Substance: .ALPHA.1-PROTEINASE INHIBITOR HUMAN
     Indication: ALPHA-1 ANTITRYPSIN DEFICIENCY
     Dosage: UNK, Q.WK.
     Route: 042
     Dates: start: 20200424
  2. KLONOPIN [Concomitant]
     Active Substance: CLONAZEPAM
  3. LAMICTAL [Concomitant]
     Active Substance: LAMOTRIGINE
  4. VASCEPA [Concomitant]
     Active Substance: ICOSAPENT ETHYL
  5. SYNTHROID [Concomitant]
     Active Substance: LEVOTHYROXINE SODIUM
  6. SINGULAIR [Concomitant]
     Active Substance: MONTELUKAST SODIUM
  7. CLARITIN [Concomitant]
     Active Substance: LORATADINE

REACTIONS (6)
  - Decreased appetite [Not Recovered/Not Resolved]
  - Weight decreased [Not Recovered/Not Resolved]
  - Nausea [Not Recovered/Not Resolved]
  - Weight fluctuation [Not Recovered/Not Resolved]
  - Diarrhoea [Not Recovered/Not Resolved]
  - Fatigue [Not Recovered/Not Resolved]

NARRATIVE: CASE EVENT DATE: 20200424
